FAERS Safety Report 7544546-6 (Version None)
Quarter: 2011Q2

REPORT INFORMATION
  Report Type: 
  Country: None (occurrence: None)
  Receive Date: 20110613
  Receipt Date: 20110606
  Transmission Date: 20111010
  Serious: Yes (Hospitalization, Other)
  Sender: FDA-Public Use
  Company Number: US-ELI_LILLY_AND_COMPANY-US201002002854

PATIENT
  Sex: Female
  Weight: 76.644 kg

DRUGS (20)
  1. METFORMIN HCL [Concomitant]
     Indication: DIABETES MELLITUS
  2. ALBUTEROL SULFATE AUTOHALER [Concomitant]
  3. MORPHINE [Concomitant]
  4. ATROVENT [Concomitant]
  5. TYLENOL (CAPLET) [Concomitant]
     Indication: HEADACHE
  6. GABAPENTIN [Concomitant]
  7. NEXIUM [Concomitant]
  8. ASPIRIN [Concomitant]
  9. BONIVA [Concomitant]
  10. FLOVENT [Concomitant]
  11. CALCIUM CARBONATE [Concomitant]
  12. ISOSORBIDE DINITRATE [Concomitant]
  13. TRICOR [Concomitant]
  14. PREMARIN [Concomitant]
  15. BYETTA [Suspect]
     Dosage: 10 UG, BID
     Dates: start: 20060101, end: 20080606
  16. CYMBALTA [Concomitant]
     Indication: DEPRESSION
     Dosage: 60 UNK, UNK
     Dates: start: 20040801
  17. PREDNISONE [Concomitant]
  18. THEOPHYLLINE [Concomitant]
  19. AMBIEN [Concomitant]
  20. LORAZEPAM [Concomitant]

REACTIONS (2)
  - WEIGHT DECREASED [None]
  - RENAL CANCER [None]
